FAERS Safety Report 15593416 (Version 1)
Quarter: 2018Q4

REPORT INFORMATION
  Report Type: Spontaneous
  Country: US (occurrence: US)
  Receive Date: 20181107
  Receipt Date: 20181107
  Transmission Date: 20190205
  Serious: Yes (Other)
  Sender: FDA-Public Use
  Company Number: None

PATIENT
  Age: 3 Year
  Sex: Female
  Weight: 13.5 kg

DRUGS (1)
  1. MIRALAX [Suspect]
     Active Substance: POLYETHYLENE GLYCOL 3350
     Indication: CONSTIPATION
     Dosage: ?          QUANTITY:1 CAPFUL;?
     Route: 048
     Dates: start: 20180724, end: 20181107

REACTIONS (6)
  - Dysphemia [None]
  - Anger [None]
  - Aggression [None]
  - Screaming [None]
  - Faeces discoloured [None]
  - Abnormal behaviour [None]

NARRATIVE: CASE EVENT DATE: 20180724
